FAERS Safety Report 6933337-2 (Version None)
Quarter: 2010Q3

REPORT INFORMATION
  Report Type: 
  Country: None (occurrence: None)
  Receive Date: 20100818
  Receipt Date: 20100818
  Transmission Date: 20110219
  Serious: No
  Sender: FDA-Public Use
  Company Number: None

PATIENT
  Sex: Female
  Weight: 68.0396 kg

DRUGS (3)
  1. CYMBALTA [Suspect]
     Indication: DEPRESSION
     Dosage: 60 MG 1 DAILY PO
     Route: 048
     Dates: start: 20090831
  2. CYMBALTA [Suspect]
     Indication: PAIN IN EXTREMITY
     Dosage: 60 MG 1 DAILY PO
     Route: 048
     Dates: start: 20090831
  3. AMBIEN [Concomitant]

REACTIONS (5)
  - ABDOMINAL PAIN [None]
  - ARTHRALGIA [None]
  - DIZZINESS [None]
  - NAUSEA [None]
  - ORTHOSTATIC HYPOTENSION [None]
